FAERS Safety Report 12159038 (Version 6)
Quarter: 2019Q1

REPORT INFORMATION
  Report Type: Report from Study
  Country: GB (occurrence: GB)
  Receive Date: 20160308
  Receipt Date: 20190222
  Transmission Date: 20190417
  Serious: Yes (Hospitalization)
  Sender: FDA-Public Use
  Company Number: GB-ROCHE-1718214

PATIENT
  Age: 31 Year
  Sex: Female

DRUGS (57)
  1. PERTUZUMAB. [Suspect]
     Active Substance: PERTUZUMAB
     Indication: BREAST CANCER METASTATIC
     Dosage: LOADING DOSE AS PER PROTOCOL
     Route: 042
     Dates: start: 20150326
  2. PACLITAXEL. [Suspect]
     Active Substance: PACLITAXEL
     Indication: BREAST CANCER METASTATIC
     Route: 042
     Dates: start: 20150326, end: 20150812
  3. PARACETAMOL [Concomitant]
     Active Substance: ACETAMINOPHEN
     Route: 042
     Dates: start: 20160718
  4. DICLOFENAC [Concomitant]
     Active Substance: DICLOFENAC
     Indication: BACK PAIN
     Route: 048
     Dates: start: 20150721, end: 201508
  5. DULOXETINE. [Concomitant]
     Active Substance: DULOXETINE
     Indication: ANXIETY
     Route: 048
     Dates: start: 201603
  6. METOCLOPRAMIDE. [Concomitant]
     Active Substance: METOCLOPRAMIDE
     Route: 065
     Dates: start: 20150813
  7. PARACETAMOL [Concomitant]
     Active Substance: ACETAMINOPHEN
     Indication: VOMITING
     Route: 065
     Dates: start: 20150918, end: 20150919
  8. DALTEPARIN [Concomitant]
     Active Substance: DALTEPARIN
     Route: 058
     Dates: start: 20160508, end: 20160516
  9. DALTEPARIN [Concomitant]
     Active Substance: DALTEPARIN
     Route: 058
     Dates: start: 20160717, end: 20160722
  10. OMEPRAZOLE. [Concomitant]
     Active Substance: OMEPRAZOLE
     Indication: GASTROOESOPHAGEAL REFLUX DISEASE
     Route: 048
     Dates: start: 201505
  11. COCODAMOL [Concomitant]
     Active Substance: ACETAMINOPHEN\CODEINE PHOSPHATE
     Indication: CHOLECYSTITIS
     Route: 048
     Dates: start: 20151109, end: 201601
  12. HALOPERIDOL. [Concomitant]
     Active Substance: HALOPERIDOL
     Indication: ANXIETY
     Route: 048
     Dates: start: 201603, end: 201603
  13. HALOPERIDOL. [Concomitant]
     Active Substance: HALOPERIDOL
     Route: 058
     Dates: start: 20160509
  14. TRASTUZUMAB. [Suspect]
     Active Substance: TRASTUZUMAB
     Indication: BREAST CANCER METASTATIC
     Route: 058
     Dates: start: 20150326, end: 20160211
  15. MACROGOL [Concomitant]
     Active Substance: POLYETHYLENE GLYCOLS
     Dosage: SACHET
     Route: 048
     Dates: start: 201505, end: 201506
  16. DIAZEPAM. [Concomitant]
     Active Substance: DIAZEPAM
     Indication: BACK PAIN
     Route: 048
     Dates: start: 20150629, end: 201603
  17. ORAMORPH [Concomitant]
     Active Substance: MORPHINE SULFATE
     Route: 065
     Dates: start: 20150918, end: 20150919
  18. CYSTITIS RELIEF (UNK INGREDIENTS) [Concomitant]
     Dosage: 1 SACHET
     Route: 048
     Dates: start: 201503
  19. BUSCOPAN [Concomitant]
     Active Substance: BUTYLSCOPOLAMINE BROMIDE
     Indication: DIARRHOEA
     Route: 048
     Dates: start: 20150721
  20. CYCLIZINE [Concomitant]
     Active Substance: CYCLIZINE
     Route: 042
     Dates: start: 20160508, end: 20160509
  21. PERTUZUMAB. [Suspect]
     Active Substance: PERTUZUMAB
     Route: 042
     Dates: start: 20150416, end: 20160211
  22. BRUFEN [Concomitant]
     Active Substance: IBUPROFEN
     Indication: BACK PAIN
     Route: 048
     Dates: start: 20150509
  23. DALTEPARIN [Concomitant]
     Active Substance: DALTEPARIN
     Indication: PERIPHERAL SWELLING
     Dosage: 18000 UNITS
     Route: 058
     Dates: start: 20150504, end: 20151027
  24. SENNA [Concomitant]
     Active Substance: SENNA LEAF\SENNOSIDES\SENNOSIDES A AND B
     Indication: CONSTIPATION
     Route: 048
     Dates: start: 201505, end: 201505
  25. SENNA [Concomitant]
     Active Substance: SENNA LEAF\SENNOSIDES\SENNOSIDES A AND B
     Route: 048
     Dates: start: 201603
  26. DOXYCYCLINE. [Concomitant]
     Active Substance: DOXYCYCLINE
     Route: 048
     Dates: start: 20150722, end: 20150728
  27. AMOXICILLIN. [Concomitant]
     Active Substance: AMOXICILLIN
     Indication: LOWER RESPIRATORY TRACT INFECTION
     Route: 048
     Dates: start: 20160309, end: 20160312
  28. TAZOCIN [Concomitant]
     Active Substance: PIPERACILLIN SODIUM\TAZOBACTAM SODIUM
     Indication: LOWER RESPIRATORY TRACT INFECTION
     Route: 042
     Dates: start: 20160304, end: 20160309
  29. CODEINE [Concomitant]
     Active Substance: CODEINE
     Route: 048
     Dates: start: 201504
  30. MACROGOL [Concomitant]
     Active Substance: POLYETHYLENE GLYCOLS
     Route: 048
     Dates: start: 20160718, end: 20160722
  31. DIFFLAM [Concomitant]
     Active Substance: BENZYDAMINE HYDROCHLORIDE
     Indication: MUCOSAL INFLAMMATION
     Route: 048
     Dates: start: 201603, end: 20160330
  32. DOCUSATE SODIUM. [Concomitant]
     Active Substance: DOCUSATE SODIUM
     Route: 048
     Dates: start: 201603, end: 20160405
  33. LORAZEPAM. [Concomitant]
     Active Substance: LORAZEPAM
     Indication: ANXIETY
     Route: 048
     Dates: start: 201603, end: 201603
  34. NYSTATIN. [Concomitant]
     Active Substance: NYSTATIN
     Indication: MUCOSAL INFLAMMATION
     Dosage: 100000 U
     Route: 050
     Dates: start: 201603, end: 20160330
  35. METOCLOPRAMIDE. [Concomitant]
     Active Substance: METOCLOPRAMIDE
     Indication: VOMITING
     Route: 065
     Dates: start: 20150326, end: 201505
  36. METOCLOPRAMIDE. [Concomitant]
     Active Substance: METOCLOPRAMIDE
     Route: 042
     Dates: start: 20160719, end: 20160722
  37. TRASTUZUMAB EMTANSINE [Suspect]
     Active Substance: ADO-TRASTUZUMAB EMTANSINE
     Indication: BREAST CANCER METASTATIC
     Route: 042
     Dates: start: 20160303, end: 20160324
  38. DOCUSATE SODIUM. [Concomitant]
     Active Substance: DOCUSATE SODIUM
     Indication: CONSTIPATION
     Route: 048
     Dates: start: 20160405, end: 20160516
  39. PARACETAMOL [Concomitant]
     Active Substance: ACETAMINOPHEN
     Indication: OVARIAN CYST
     Route: 048
     Dates: start: 201504
  40. PARACETAMOL [Concomitant]
     Active Substance: ACETAMINOPHEN
     Route: 042
     Dates: start: 20160508, end: 20160508
  41. SENNA [Concomitant]
     Active Substance: SENNA LEAF\SENNOSIDES\SENNOSIDES A AND B
     Route: 048
     Dates: start: 20160512
  42. ZOMORPH [Concomitant]
     Active Substance: MORPHINE SULFATE
     Indication: BACK PAIN
     Route: 048
     Dates: start: 20150710
  43. BUSCOPAN [Concomitant]
     Active Substance: BUTYLSCOPOLAMINE BROMIDE
     Route: 048
     Dates: start: 20160405
  44. DOXYCYCLINE. [Concomitant]
     Active Substance: DOXYCYCLINE
     Route: 048
     Dates: start: 20150721, end: 20150721
  45. LIDOCAINE. [Concomitant]
     Active Substance: LIDOCAINE
     Indication: BACK PAIN
     Route: 062
     Dates: start: 20151109, end: 201603
  46. DOCUSATE [Concomitant]
     Active Substance: DOCUSATE
     Indication: CONSTIPATION
     Route: 048
     Dates: start: 201603
  47. AMITRIPTYLINE [Concomitant]
     Active Substance: AMITRIPTYLINE
     Indication: ANXIETY
     Route: 048
     Dates: start: 20160228, end: 20160302
  48. DOCUSATE SODIUM. [Concomitant]
     Active Substance: DOCUSATE SODIUM
     Route: 048
     Dates: start: 20160516
  49. GABAPENTIN. [Concomitant]
     Active Substance: GABAPENTIN
     Route: 048
     Dates: start: 201304
  50. ORAMORPH [Concomitant]
     Active Substance: MORPHINE SULFATE
     Indication: BACK PAIN
     Route: 048
     Dates: start: 20150513, end: 20150518
  51. TRIMETHOPRIM. [Concomitant]
     Active Substance: TRIMETHOPRIM
     Indication: URINARY TRACT INFECTION
     Route: 048
     Dates: start: 20150604, end: 20150606
  52. AMOXICILLIN. [Concomitant]
     Active Substance: AMOXICILLIN
     Indication: NASOPHARYNGITIS
     Route: 048
     Dates: start: 20151007, end: 20151013
  53. CYCLIZINE [Concomitant]
     Active Substance: CYCLIZINE
     Indication: NAUSEA
     Route: 048
     Dates: start: 201603, end: 201607
  54. CYCLIZINE [Concomitant]
     Active Substance: CYCLIZINE
     Route: 042
     Dates: start: 20160717, end: 20160718
  55. LORAZEPAM. [Concomitant]
     Active Substance: LORAZEPAM
     Route: 048
     Dates: start: 20160512
  56. NYSTATIN. [Concomitant]
     Active Substance: NYSTATIN
     Dosage: 100000 U
     Route: 048
     Dates: start: 20160516
  57. CHLORHEXIDINE [Concomitant]
     Active Substance: CHLORHEXIDINE
     Indication: MUCOSAL INFLAMMATION
     Route: 048
     Dates: start: 201603

REACTIONS (39)
  - Vomiting [Recovered/Resolved]
  - Insomnia [Not Recovered/Not Resolved]
  - Peripheral swelling [Recovered/Resolved]
  - Viral infection [Recovered/Resolved]
  - Vomiting [Recovered/Resolved]
  - Dizziness [Not Recovered/Not Resolved]
  - Back pain [Recovered/Resolved with Sequelae]
  - Mucosal inflammation [Recovered/Resolved]
  - Abdominal pain [Unknown]
  - Gingival bleeding [Recovered/Resolved]
  - Pain [Not Recovered/Not Resolved]
  - Nausea [Recovered/Resolved]
  - Gastroenteritis viral [Recovered/Resolved]
  - Nausea [Not Recovered/Not Resolved]
  - Gastrointestinal disorder [Not Recovered/Not Resolved]
  - Fatigue [Not Recovered/Not Resolved]
  - Diarrhoea [Recovered/Resolved]
  - Headache [Not Recovered/Not Resolved]
  - Abdominal pain [Recovered/Resolved]
  - Headache [Recovered/Resolved]
  - Alanine aminotransferase increased [Recovered/Resolved]
  - Nausea [Not Recovered/Not Resolved]
  - Hypoaesthesia [Not Recovered/Not Resolved]
  - Back pain [Not Recovered/Not Resolved]
  - Nasopharyngitis [Unknown]
  - Urinary tract infection [Recovered/Resolved]
  - Abdominal pain [Recovered/Resolved]
  - Lower respiratory tract infection [Recovered/Resolved]
  - Anxiety [Not Recovered/Not Resolved]
  - Depressed mood [Not Recovered/Not Resolved]
  - Abdominal pain upper [Recovered/Resolved with Sequelae]
  - Abdominal pain [Recovered/Resolved]
  - Pain [Recovering/Resolving]
  - Pain [Not Recovered/Not Resolved]
  - Rhinorrhoea [Recovered/Resolved]
  - Constipation [Unknown]
  - Viral infection [Recovered/Resolved]
  - Urinary tract infection [Recovered/Resolved with Sequelae]
  - Diarrhoea [Recovered/Resolved]

NARRATIVE: CASE EVENT DATE: 201505
